FAERS Safety Report 4445474-5 (Version None)
Quarter: 2004Q2

REPORT INFORMATION
  Report Type: 
  Country: None (occurrence: None)
  Receive Date: 20040428
  Receipt Date: 20030903
  Transmission Date: 20050107
  Serious: Yes (Life-Threatening, Other)
  Sender: FDA-Public Use
  Company Number: 200310186BBE

PATIENT
  Age: 61 Year
  Sex: Male

DRUGS (5)
  1. GAMIMUNE N 10% [Suspect]
     Indication: GAMMOPATHY
     Dosage: 1000 MG/KG, INTRAVENOUS
     Route: 042
     Dates: start: 20030829
  2. GAMIMUNE N 10% [Suspect]
     Indication: GAMMOPATHY
     Dosage: 1000 MG/KG, INTRAVENOUS
     Route: 042
     Dates: start: 20030829
  3. GAMIMUNE N 10% [Suspect]
     Indication: GAMMOPATHY
     Dosage: 1000 MG/KG, INTRAVENOUS
     Route: 042
     Dates: start: 20030829
  4. GAMIMUNE N 10% [Suspect]
  5. GAMIMUNE N 10% [Suspect]

REACTIONS (6)
  - ANAPHYLACTIC REACTION [None]
  - BLOOD PRESSURE INCREASED [None]
  - CHEST DISCOMFORT [None]
  - DYSPNOEA [None]
  - RASH [None]
  - THROAT TIGHTNESS [None]
